FAERS Safety Report 8001400-3 (Version None)
Quarter: 2011Q4

REPORT INFORMATION
  Report Type: 
  Country: None (occurrence: None)
  Receive Date: 20111219
  Receipt Date: 20111214
  Transmission Date: 20120403
  Serious: Yes (Life-Threatening)
  Sender: FDA-Public Use
  Company Number: USA/USA/11/0022331

PATIENT
  Age: 45 Year
  Sex: Female
  Weight: 77.1115 kg

DRUGS (1)
  1. RANITIDINE [Suspect]
     Indication: DYSPEPSIA
     Dosage: 1 DOISAGE FORMS, TOTAL, ORAL
     Route: 048
     Dates: start: 20111213

REACTIONS (11)
  - FEELING ABNORMAL [None]
  - HYPOAESTHESIA [None]
  - LOSS OF CONSCIOUSNESS [None]
  - FLUSHING [None]
  - DYSPNOEA [None]
  - URTICARIA [None]
  - HYPERSENSITIVITY [None]
  - HEADACHE [None]
  - SWOLLEN TONGUE [None]
  - FEELING HOT [None]
  - OEDEMA PERIPHERAL [None]
